FAERS Safety Report 7874897-7 (Version None)
Quarter: 2011Q4

REPORT INFORMATION
  Report Type: 
  Country: None (occurrence: None)
  Receive Date: 20111031
  Receipt Date: 20111025
  Transmission Date: 20120403
  Serious: Yes (Other)
  Sender: FDA-Public Use
  Company Number: BR-PFIZER INC-2011260829

PATIENT
  Age: 65 Year
  Sex: Female
  Weight: 65 kg

DRUGS (5)
  1. APRESOLINE [Concomitant]
     Indication: HYPERTENSION
     Dosage: 50 MG, 2X/DAY
  2. ATENOLOL [Concomitant]
     Indication: HYPERTENSION
     Dosage: 1 TABLET OF 50 MG IN THE MORNING AND 1 TABLET OF 50 MG AT NIGHT
  3. ATENSINE [Concomitant]
     Indication: HYPERTENSION
     Dosage: 1 TABLET OF 200 MG IN THE MORNING AND 1 TABLET OF 200 MG AT NIGHT
  4. LEVOTHYROXINE SODIUM [Concomitant]
     Indication: THYROID DISORDER
     Dosage: 88 UG, UNK
  5. LONITEN [Suspect]
     Indication: HYPERTENSION
     Dosage: UNSPECIFIED DOSE, 2X/DAY (A PIECE IN THE MORNING AND A PIECE AT NIGHT)
     Route: 048

REACTIONS (2)
  - HYPERTRICHOSIS [None]
  - RENAL IMPAIRMENT [None]
